FAERS Safety Report 7735420-0 (Version None)
Quarter: 2011Q3

REPORT INFORMATION
  Report Type: 
  Country: None (occurrence: None)
  Receive Date: 20110907
  Receipt Date: 20110824
  Transmission Date: 20111222
  Serious: Yes (Hospitalization)
  Sender: FDA-Public Use
  Company Number: US-CELGENEUS-163-AB007-11081303

PATIENT
  Sex: Female
  Weight: 87 kg

DRUGS (28)
  1. GEMCITABINE [Suspect]
     Dosage: 600 MILLIGRAM/SQ. METER
     Route: 065
     Dates: end: 20110802
  2. VITAMIN D [Concomitant]
     Route: 048
     Dates: start: 20110101
  3. ABRAXANE [Suspect]
     Dosage: 75 MILLIGRAM/SQ. METER
     Route: 065
     Dates: end: 20110802
  4. PRBC [Concomitant]
     Dosage: 2 UNITS
     Route: 041
     Dates: start: 20110510, end: 20110510
  5. PRBC [Concomitant]
     Route: 041
     Dates: start: 20110531, end: 20110531
  6. NEUPOGEN [Concomitant]
     Indication: FEBRILE NEUTROPENIA
     Route: 058
     Dates: start: 20110510, end: 20110510
  7. XYLOCAINE [Concomitant]
     Route: 048
     Dates: start: 20110524
  8. MYCELEX [Concomitant]
     Route: 048
     Dates: start: 20110412, end: 20110417
  9. LORAZEPAM [Concomitant]
     Indication: PROPHYLAXIS
     Route: 048
     Dates: start: 20110329
  10. ONDANSETRON [Concomitant]
     Indication: VOMITING
  11. ALOXI [Concomitant]
     Indication: PROPHYLAXIS
     Route: 041
     Dates: start: 20110329
  12. ACTIGALL [Concomitant]
     Route: 048
     Dates: start: 19900101
  13. ABRAXANE [Suspect]
     Indication: ADENOCARCINOMA PANCREAS
     Dosage: 125 MILLIGRAM/SQ. METER
     Route: 065
     Dates: start: 20110329
  14. MYLANTA [Concomitant]
     Route: 048
     Dates: start: 20110524
  15. MORPHINE SULFATE [Concomitant]
     Indication: PAIN
     Route: 048
     Dates: start: 20110322
  16. VENTOLIN HFA [Concomitant]
     Indication: BRONCHOSPASM
     Route: 055
     Dates: start: 20110427
  17. CIPROFLOXACIN [Concomitant]
     Indication: PROPHYLAXIS
     Route: 048
     Dates: start: 20110614
  18. BENADRYL [Concomitant]
     Route: 048
     Dates: start: 20110524
  19. MYCELEX [Concomitant]
     Route: 048
     Dates: start: 20110524
  20. DECADRON [Concomitant]
     Indication: PROPHYLAXIS
     Route: 041
     Dates: start: 20110329
  21. VENTOLIN HFA [Concomitant]
  22. CITALOPRAM HYDROBROMIDE [Concomitant]
     Indication: DEPRESSION
     Route: 048
     Dates: start: 20110322
  23. ONDANSETRON [Concomitant]
     Indication: NAUSEA
     Route: 048
     Dates: start: 20110329
  24. MEGACE [Concomitant]
     Route: 048
     Dates: start: 20110427
  25. CIPROFLOXACIN [Concomitant]
     Indication: URINARY TRACT INFECTION
     Route: 048
     Dates: start: 20110427
  26. LASIX [Concomitant]
     Route: 041
     Dates: start: 20110510, end: 20110510
  27. GEMCITABINE [Suspect]
     Dosage: 1000 MILLIGRAM/SQ. METER
     Route: 065
     Dates: start: 20110329
  28. ENOXAPARIN SODIUM [Concomitant]
     Indication: ANTICOAGULANT THERAPY
     Route: 058
     Dates: start: 20110323

REACTIONS (1)
  - SYNCOPE [None]
